FAERS Safety Report 16866636 (Version 1)
Quarter: 2019Q3

REPORT INFORMATION
  Report Type: Spontaneous
  Country: CA (occurrence: CA)
  Receive Date: 20190930
  Receipt Date: 20190930
  Transmission Date: 20191005
  Serious: Yes (Death)
  Sender: FDA-Public Use
  Company Number: CA-TEVA-2019-CA-1114227

PATIENT
  Age: 70 Year
  Sex: Female
  Weight: 59 kg

DRUGS (8)
  1. IBUPROFEN. [Concomitant]
     Active Substance: IBUPROFEN
  2. CIPROFLOXACIN. [Suspect]
     Active Substance: CIPROFLOXACIN
     Indication: PNEUMONIA
     Dosage: 2 DOSAGE FORM
     Route: 048
  3. VENTOLIN [Concomitant]
     Active Substance: ALBUTEROL SULFATE
  4. AMLODIPINE [Concomitant]
     Active Substance: AMLODIPINE BESYLATE
  5. MOXIFLOXACIN HYDROCHLORIDE. [Concomitant]
     Active Substance: MOXIFLOXACIN HYDROCHLORIDE
  6. IBUPROFEN. [Suspect]
     Active Substance: IBUPROFEN
     Indication: PRODUCT USED FOR UNKNOWN INDICATION
     Route: 065
  7. QVAR [Concomitant]
     Active Substance: BECLOMETHASONE DIPROPIONATE
     Route: 055
  8. SPIRIVA [Concomitant]
     Active Substance: TIOTROPIUM BROMIDE MONOHYDRATE

REACTIONS (14)
  - Coma [Fatal]
  - Arthralgia [Fatal]
  - Vasodilatation [Fatal]
  - Vein discolouration [Fatal]
  - Chondropathy [Fatal]
  - Condition aggravated [Fatal]
  - Mental disorder [Fatal]
  - Personality change [Fatal]
  - Dysphagia [Fatal]
  - Nightmare [Fatal]
  - Pain [Fatal]
  - Psychotic disorder [Fatal]
  - Tinnitus [Fatal]
  - Abdominal rigidity [Fatal]
